FAERS Safety Report 10948389 (Version 1)
Quarter: 2015Q1

REPORT INFORMATION
  Report Type: Spontaneous
  Country: US (occurrence: None)
  Receive Date: 20150220
  Receipt Date: 20150220
  Transmission Date: 20150721
  Serious: No
  Sender: FDA-Public Use
  Company Number: 1000072448

PATIENT
  Age: 66 Year
  Sex: Female

DRUGS (3)
  1. BREO (FLUTICASONE FUROATE, VILANTEROL) (FLUTICASONE FUROATE, VILANTEROL) [Concomitant]
  2. TUDORZA PRESSAIR [Suspect]
     Active Substance: ACLIDINIUM BROMIDE
     Indication: CHRONIC OBSTRUCTIVE PULMONARY DISEASE
     Dosage: 600 MCG (400 MCG, 2 IN 1 D), RESPIRATORY (INHALATION)?
     Route: 055
     Dates: start: 2014
  3. ALBUTEROL SULFATE. [Concomitant]
     Active Substance: ALBUTEROL SULFATE

REACTIONS (3)
  - Feeling abnormal [None]
  - Dyspnoea [None]
  - Drug ineffective [None]

NARRATIVE: CASE EVENT DATE: 201410
